FAERS Safety Report 4789949-8 (Version None)
Quarter: 2005Q4

REPORT INFORMATION
  Report Type: 
  Country: None (occurrence: None)
  Receive Date: 20051006
  Receipt Date: 20050927
  Transmission Date: 20060501
  Serious: Yes (Death, Hospitalization)
  Sender: FDA-Public Use
  Company Number: FR-JNJFOC-20051000706

PATIENT
  Age: 38 Year
  Sex: Female

DRUGS (9)
  1. TOPALGIC [Suspect]
     Route: 042
  2. LOVENOX [Concomitant]
     Route: 058
  3. CLINOMEL [Concomitant]
     Route: 042
  4. CLINOMEL [Concomitant]
     Route: 042
  5. CLINOMEL [Concomitant]
     Route: 042
  6. CLINOMEL [Concomitant]
     Route: 042
  7. CLINOMEL [Concomitant]
     Indication: NUTRITIONAL SUPPORT
     Route: 042
  8. AUGMENTIN [Concomitant]
     Route: 042
  9. AUGMENTIN [Concomitant]
     Indication: ASCITES INFECTION
     Route: 042

REACTIONS (4)
  - CONFUSIONAL STATE [None]
  - HALLUCINATION, VISUAL [None]
  - HEPATIC ENZYME INCREASED [None]
  - RECTOSIGMOID CANCER [None]
